FAERS Safety Report 6071961-2 (Version None)
Quarter: 2009Q1

REPORT INFORMATION
  Report Type: 
  Country: None (occurrence: None)
  Receive Date: 20090205
  Receipt Date: 20090205
  Transmission Date: 20090719
  Serious: Yes (Other)
  Sender: FDA-Public Use
  Company Number: None

PATIENT
  Age: 4 Year
  Sex: Male
  Weight: 17.2367 kg

DRUGS (1)
  1. SINGULAIR [Suspect]
     Indication: COUGH
     Dosage: 4MG 1X DAILY PO
     Route: 048
     Dates: start: 20081109, end: 20090109

REACTIONS (4)
  - ANXIETY [None]
  - FEAR [None]
  - MOOD SWINGS [None]
  - NIGHTMARE [None]
